FAERS Safety Report 14765929 (Version 2)
Quarter: 2018Q2

REPORT INFORMATION
  Report Type: Spontaneous
  Country: CN (occurrence: CN)
  Receive Date: 20180416
  Receipt Date: 20180423
  Transmission Date: 20180711
  Serious: Yes (Other)
  Sender: FDA-Public Use
  Company Number: CN-ABBVIE-18P-035-2321165-00

PATIENT
  Age: 33 Year
  Sex: Male

DRUGS (3)
  1. CARBAMAZEPINE. [Interacting]
     Active Substance: CARBAMAZEPINE
     Indication: EPILEPSY
     Route: 042
  2. SODIUM VALPROATE [Suspect]
     Active Substance: VALPROATE SODIUM
     Indication: EPILEPSY
     Route: 065
  3. CARBAMAZEPINE. [Interacting]
     Active Substance: CARBAMAZEPINE
     Route: 042

REACTIONS (9)
  - Toxic encephalopathy [Recovered/Resolved]
  - Dizziness [Recovered/Resolved]
  - Status epilepticus [Recovered/Resolved]
  - Somnolence [Recovered/Resolved]
  - Depressed level of consciousness [Recovered/Resolved]
  - Slow response to stimuli [Recovered/Resolved]
  - Nausea [Recovered/Resolved]
  - Focal dyscognitive seizures [Recovered/Resolved]
  - Gait disturbance [Recovered/Resolved]
